FAERS Safety Report 8908529 (Version 1)
Quarter: 2012Q4

REPORT INFORMATION
  Report Type: Report from Study
  Country: JP (occurrence: JP)
  Receive Date: 20121114
  Receipt Date: 20121114
  Transmission Date: 20130627
  Serious: Yes (Other)
  Sender: FDA-Public Use
  Company Number: JP-VERTEX PHARMACEUTICAL INC.-AE-2012-010804

PATIENT
  Age: 53 Year
  Sex: Female

DRUGS (13)
  1. VX-950 (TELAPREVIR) [Suspect]
     Indication: HEPATITIS C
     Dosage: 2250 mg, qd
     Route: 048
     Dates: start: 20120116, end: 20120325
  2. VX-950 (TELAPREVIR) [Suspect]
     Dosage: 1500 mg, qd
     Route: 048
     Dates: start: 20120326, end: 20120409
  3. VX-950 (TELAPREVIR) [Suspect]
     Dosage: 1500 mg, qd
     Route: 048
     Dates: start: 20120411, end: 20120415
  4. RIBAVIRIN [Suspect]
     Indication: CHRONIC HEPATITIS C
     Dosage: 600 mg, qd
     Route: 048
     Dates: start: 20120116, end: 20120226
  5. RIBAVIRIN [Suspect]
     Dosage: 400 mg, qd
     Route: 048
     Dates: start: 20120227, end: 20120304
  6. RIBAVIRIN [Suspect]
     Dosage: 200 mg, qd
     Route: 048
     Dates: start: 20120305, end: 20120527
  7. RIBAVIRIN [Suspect]
     Dosage: 400 mg, qd
     Route: 048
     Dates: start: 20120528, end: 20120603
  8. RIBAVIRIN [Suspect]
     Dosage: 600 mg, qd
     Route: 048
     Dates: start: 20120604
  9. PEGINTRON [Suspect]
     Indication: CHRONIC HEPATITIS C
     Dosage: 1.5 ?g/kg, qw
     Route: 058
     Dates: start: 20120116, end: 20120213
  10. PEGINTRON [Suspect]
     Dosage: 0.75 ?g/kg, qw
     Route: 058
     Dates: start: 20120220, end: 20120326
  11. PEGINTRON [Suspect]
     Dosage: 0.94 ?g/kg, qw
     Route: 058
     Dates: start: 20120402
  12. MUCOSTA [Concomitant]
     Route: 048
     Dates: start: 20120116, end: 20120212
  13. LOXONIN [Concomitant]
     Route: 048
     Dates: start: 20120116, end: 20120212

REACTIONS (1)
  - White blood cell count decreased [Not Recovered/Not Resolved]
